FAERS Safety Report 9208956 (Version 7)
Quarter: 2014Q3

REPORT INFORMATION
  Report Type: Report from Study
  Country: IS (occurrence: IS)
  Receive Date: 20130404
  Receipt Date: 20140812
  Transmission Date: 20150326
  Serious: Yes (Hospitalization)
  Sender: FDA-Public Use
  Company Number: PHHO2013IS004538

PATIENT

DRUGS (3)
  1. ENALAPRIL [Suspect]
     Active Substance: ENALAPRIL
     Indication: CARDIAC FAILURE CHRONIC
     Dosage: 10 MG, BID
     Route: 048
     Dates: start: 20100708
  2. CHLOROTHIAZIDE. [Suspect]
     Active Substance: CHLOROTHIAZIDE
     Indication: CARDIAC FAILURE
     Dosage: 25 MG, QD (25 MGX1)
     Dates: start: 20110804, end: 20130318
  3. AMLODIPINE [Suspect]
     Active Substance: AMLODIPINE BESYLATE
     Indication: HYPERTENSION
     Dosage: 5 MG, QD (5 MG X 1)
     Dates: start: 20120622, end: 20130318

REACTIONS (2)
  - Ventricular tachycardia [Recovered/Resolved]
  - Atrioventricular block second degree [Recovered/Resolved]

NARRATIVE: CASE EVENT DATE: 20130314
